FAERS Safety Report 16947451 (Version 1)
Quarter: 2019Q4

REPORT INFORMATION
  Report Type: Report from Study
  Country: VN (occurrence: VN)
  Receive Date: 20191022
  Receipt Date: 20191022
  Transmission Date: 20200122
  Serious: Yes (Hospitalization, Other)
  Sender: FDA-Public Use
  Company Number: PHHY2019VN167154

PATIENT
  Age: 26 Year
  Sex: Female
  Weight: 55 kg

DRUGS (1)
  1. FRAIZERON [Suspect]
     Active Substance: SECUKINUMAB
     Indication: PSORIASIS
     Dosage: 300 MG, UNK
     Route: 058
     Dates: start: 20180917, end: 20190716

REACTIONS (11)
  - Pleural effusion [Unknown]
  - Mucosal discolouration [Unknown]
  - Psoriasis [Unknown]
  - Pericardial effusion [Unknown]
  - Fatigue [Unknown]
  - Oedema peripheral [Unknown]
  - Psoriatic arthropathy [Unknown]
  - Systemic lupus erythematosus [Unknown]
  - Thalassaemia [Unknown]
  - Purpura [Unknown]
  - Pallor [Unknown]

NARRATIVE: CASE EVENT DATE: 20190715
